FAERS Safety Report 12934696 (Version 2)
Quarter: 2016Q4

REPORT INFORMATION
  Report Type: Spontaneous
  Country: ES (occurrence: ES)
  Receive Date: 20161111
  Receipt Date: 20161118
  Transmission Date: 20170207
  Serious: No
  Sender: FDA-Public Use
  Company Number: ES-PFM-2016-01560

PATIENT
  Age: 70 Year
  Sex: Male

DRUGS (9)
  1. DIAZEPAM. [Concomitant]
     Active Substance: DIAZEPAM
     Indication: PRODUCT USED FOR UNKNOWN INDICATION
     Dosage: 5 MG
     Route: 048
     Dates: start: 20160727, end: 20161003
  2. OMEPRAZOL [Concomitant]
     Active Substance: OMEPRAZOLE
     Indication: PRODUCT USED FOR UNKNOWN INDICATION
     Dosage: 20 MG
     Route: 048
     Dates: start: 20160609, end: 20161007
  3. NAVELBINE [Suspect]
     Active Substance: VINORELBINE TARTRATE
     Dosage: 48 MG WEEKLY , CYCLICAL(1/21).
     Route: 042
     Dates: start: 20161006
  4. LACTULOSE. [Concomitant]
     Active Substance: LACTULOSE
     Indication: PRODUCT USED FOR UNKNOWN INDICATION
     Dosage: 10 G
     Route: 048
     Dates: start: 20160904, end: 20160914
  5. INNOHEP [Concomitant]
     Active Substance: TINZAPARIN SODIUM
     Indication: PRODUCT USED FOR UNKNOWN INDICATION
     Dosage: 3500 PER DAY
     Route: 058
     Dates: start: 20160825, end: 20160924
  6. NAVELBINE [Suspect]
     Active Substance: VINORELBINE TARTRATE
     Indication: SARCOMATOID MESOTHELIOMA
     Dosage: 48 MG WEEKLY, CYCLICAL(1/21).
     Route: 042
     Dates: start: 20160804
  7. NAVELBINE [Suspect]
     Active Substance: VINORELBINE TARTRATE
     Dosage: WEEKLY 48 MG, CYCLICAL(1/21).
     Route: 017
     Dates: start: 20160901
  8. FOLIC ACID. [Concomitant]
     Active Substance: FOLIC ACID
     Indication: PRODUCT USED FOR UNKNOWN INDICATION
     Dosage: 5 MG
     Route: 048
     Dates: start: 20160526, end: 20161007
  9. OPTOVITE B12 [Concomitant]
     Active Substance: CYANOCOBALAMIN
     Indication: PRODUCT USED FOR UNKNOWN INDICATION
     Dosage: 1 DF EVERY 9 WEEK
     Route: 048
     Dates: start: 20160524, end: 20161013

REACTIONS (5)
  - Tonic clonic movements [None]
  - Product use issue [Unknown]
  - Off label use [Unknown]
  - Muscle spasms [Recovered/Resolved]
  - Myalgia [Recovered/Resolved]

NARRATIVE: CASE EVENT DATE: 20161006
